FAERS Safety Report 10399334 (Version 1)
Quarter: 2014Q1

REPORT INFORMATION
  Report Type: Spontaneous
  Country: US (occurrence: None)
  Receive Date: 20130815
  Receipt Date: 20130815
  Transmission Date: 20141002
  Serious: Yes (Hospitalization, Other)
  Sender: FDA-Public Use
  Company Number: ADR-2012-01689

PATIENT
  Sex: Male

DRUGS (3)
  1. BACLOFEN INTRATHECAL (BACLOFEN INJECTION) [Suspect]
     Indication: MUSCLE SPASTICITY
     Dosage: 200MCG/DAY
  2. BACLOFEN INTRATHECAL (BACLOFEN INJECTION) [Suspect]
     Indication: CEREBRAL PALSY
     Dosage: 200MCG/DAY
  3. UNKNOWN ANTIBIOTICS (UNKNOWN ROUTE OF ADMINISTERATION) [Concomitant]

REACTIONS (4)
  - Drug withdrawal syndrome [None]
  - Implant site infection [None]
  - Pruritus [None]
  - Hypertonia [None]
